FAERS Safety Report 7714584-9 (Version None)
Quarter: 2011Q3

REPORT INFORMATION
  Report Type: 
  Country: None (occurrence: None)
  Receive Date: 20110829
  Receipt Date: 20110823
  Transmission Date: 20111222
  Serious: No
  Sender: FDA-Public Use
  Company Number: US-PFIZER INC-2011159894

PATIENT
  Age: 50 Year
  Sex: Male

DRUGS (3)
  1. VITAMIN TAB [Concomitant]
     Dosage: UNK
  2. BENZYLPENICILLOYL-POLYLYSINE [Suspect]
     Dosage: UNK
  3. ZYRTEC [Concomitant]
     Dosage: UNK

REACTIONS (1)
  - DRUG HYPERSENSITIVITY [None]
